FAERS Safety Report 18889179 (Version 1)
Quarter: 2021Q1

REPORT INFORMATION
  Report Type: Spontaneous
  Country: CA (occurrence: CA)
  Receive Date: 20210212
  Receipt Date: 20210212
  Transmission Date: 20210420
  Serious: Yes (Life-Threatening, Hospitalization, Disabling)
  Sender: FDA-Public Use
  Company Number: CA-ASTRAZENECA-2021A038188

PATIENT
  Age: 85 Year
  Sex: Female

DRUGS (7)
  1. ACETAMINOPHEN. [Concomitant]
     Active Substance: ACETAMINOPHEN
  2. DEXAMETHASONE. [Concomitant]
     Active Substance: DEXAMETHASONE
  3. HYDROMORPHONE [Concomitant]
     Active Substance: HYDROMORPHONE
  4. PANTOPRAZOLE [Concomitant]
     Active Substance: PANTOPRAZOLE
  5. SENOKOT [Concomitant]
     Active Substance: SENNOSIDES
  6. TAGRISSO [Suspect]
     Active Substance: OSIMERTINIB
     Indication: LUNG CANCER METASTATIC
     Route: 048
  7. GABAPENTIN. [Concomitant]
     Active Substance: GABAPENTIN

REACTIONS (9)
  - Malaise [Unknown]
  - Pain in extremity [Unknown]
  - Pulmonary embolism [Unknown]
  - Deep vein thrombosis [Unknown]
  - Dyspnoea [Unknown]
  - Erythema [Unknown]
  - Stomatitis [Unknown]
  - Embolism venous [Unknown]
  - Loss of consciousness [Unknown]
